FAERS Safety Report 8421015-2 (Version None)
Quarter: 2012Q2

REPORT INFORMATION
  Report Type: 
  Country: None (occurrence: None)
  Receive Date: 20120604
  Receipt Date: 20120604
  Transmission Date: 20120825
  Serious: Yes (Life-Threatening, Hospitalization, Disabling)
  Sender: FDA-Public Use
  Company Number: None

PATIENT
  Age: 69 Year
  Sex: Male
  Weight: 101.6057 kg

DRUGS (1)
  1. CELEBREX [Suspect]
     Indication: ARTHRITIS
     Dosage: ONE TABLET/200 MG 1 TIME A DAY PO
     Route: 048
     Dates: start: 20000101, end: 20120518

REACTIONS (2)
  - MYOCARDIAL INFARCTION [None]
  - HEART INJURY [None]
